FAERS Safety Report 11440577 (Version 1)
Quarter: 2015Q3

REPORT INFORMATION
  Report Type: Spontaneous
  Country: US (occurrence: US)
  Receive Date: 20150821
  Receipt Date: 20150821
  Transmission Date: 20151125
  Serious: No
  Sender: FDA-Public Use
  Company Number: US-ELI_LILLY_AND_COMPANY-US200706004843

PATIENT
  Age: 61 Year
  Sex: Female

DRUGS (9)
  1. MOBIC [Concomitant]
     Active Substance: MELOXICAM
     Indication: ARTHRALGIA
     Dosage: 15 MG, DAILY (1/D)
  2. XANAX [Concomitant]
     Active Substance: ALPRAZOLAM
     Indication: STRESS
  3. LORAZEPAM. [Concomitant]
     Active Substance: LORAZEPAM
     Indication: PAIN
     Dosage: 750 MG, 2/D
  4. SEROQUEL [Concomitant]
     Active Substance: QUETIAPINE FUMARATE
     Indication: STRESS
  5. BUSPAR [Concomitant]
     Active Substance: BUSPIRONE HYDROCHLORIDE
     Indication: STRESS
  6. ANALGESICS [Concomitant]
     Active Substance: UNSPECIFIED INGREDIENT
  7. CYMBALTA [Suspect]
     Active Substance: DULOXETINE HYDROCHLORIDE
     Indication: PAIN
     Dosage: UNK, UNKNOWN
     Route: 048
     Dates: end: 20070416
  8. WELLBUTRIN XL [Concomitant]
     Active Substance: BUPROPION HYDROCHLORIDE
     Indication: STRESS
  9. TYLENOL COUGH [Concomitant]
     Indication: LARYNGEAL PAIN
     Dosage: UNK, UNK
     Dates: start: 20070406, end: 20070408

REACTIONS (4)
  - Dysuria [Recovered/Resolved]
  - Abnormal behaviour [Recovered/Resolved]
  - Memory impairment [Recovered/Resolved]
  - Incoherent [Recovered/Resolved]

NARRATIVE: CASE EVENT DATE: 200704
